FAERS Safety Report 23433829 (Version 1)
Quarter: 2024Q1

REPORT INFORMATION
  Report Type: Spontaneous
  Country: US (occurrence: US)
  Receive Date: 20240123
  Receipt Date: 20240123
  Transmission Date: 20240409
  Serious: Yes (Death, Hospitalization, Other)
  Sender: FDA-Public Use
  Company Number: US-AZURITY PHARMACEUTICALS, INC.-US-2024ARB000034

PATIENT
  Age: 75 Year
  Sex: Male

DRUGS (4)
  1. BENDAMUSTINE HYDROCHLORIDE [Suspect]
     Active Substance: BENDAMUSTINE HYDROCHLORIDE
     Indication: Mantle cell lymphoma
     Dosage: UNK
     Route: 065
  2. VANCOMYCIN HYDROCHLORIDE [Suspect]
     Active Substance: VANCOMYCIN HYDROCHLORIDE
     Indication: Pneumocystis jirovecii pneumonia
     Dosage: UNK
     Route: 065
  3. RITUXIMAB [Suspect]
     Active Substance: RITUXIMAB
     Indication: Mantle cell lymphoma
     Dosage: UNK
     Route: 065
  4. CYTARABINE [Suspect]
     Active Substance: CYTARABINE
     Indication: Mantle cell lymphoma
     Dosage: UNK
     Route: 065

REACTIONS (8)
  - Pneumocystis jirovecii pneumonia [Fatal]
  - Adenovirus infection [Fatal]
  - Acute respiratory distress syndrome [Not Recovered/Not Resolved]
  - Acute kidney injury [Not Recovered/Not Resolved]
  - Multiple organ dysfunction syndrome [Not Recovered/Not Resolved]
  - Lymphopenia [Unknown]
  - Mental status changes [Not Recovered/Not Resolved]
  - Product use in unapproved indication [Unknown]
